FAERS Safety Report 8372523-4 (Version None)
Quarter: 2012Q2

REPORT INFORMATION
  Report Type: 
  Country: None (occurrence: None)
  Receive Date: 20120521
  Receipt Date: 20120514
  Transmission Date: 20120825
  Serious: Yes (Other)
  Sender: FDA-Public Use
  Company Number: PHEH2012US010137

PATIENT
  Sex: Male

DRUGS (3)
  1. ALPRAZOLAM [Concomitant]
     Dosage: 0.33 DF (1 MG), PRN (DAILY)
  2. OXYCODONE HCL [Concomitant]
     Dosage: 4 DF (10/325 MG), DAILY
  3. DIOVAN [Suspect]
     Dosage: 320 MG, 1 X DAILY

REACTIONS (3)
  - CEREBROVASCULAR ACCIDENT [None]
  - BALANCE DISORDER [None]
  - TREMOR [None]
